FAERS Safety Report 7581863-8 (Version None)
Quarter: 2011Q2

REPORT INFORMATION
  Report Type: 
  Country: None (occurrence: None)
  Receive Date: 20110629
  Receipt Date: 20100803
  Transmission Date: 20111010
  Serious: Yes (Other)
  Sender: FDA-Public Use
  Company Number: PHHY2010US92290

PATIENT
  Sex: Female

DRUGS (6)
  1. FANAPT [Suspect]
     Dosage: 6 MG, BID
     Route: 048
     Dates: start: 20100601
  2. CLONAZEPAM [Concomitant]
     Indication: SLEEP DISORDER
     Dosage: 2 MG, QD (AT BED TIME)
  3. OMEPRAZOLE [Concomitant]
     Indication: GASTROOESOPHAGEAL REFLUX DISEASE
     Dosage: 20 MG, BID
     Route: 048
  4. BENZTROPINE MESYLATE [Concomitant]
     Indication: EXTRAPYRAMIDAL DISORDER
     Dosage: 2 MG, BID
     Route: 048
  5. FANAPT [Suspect]
     Indication: PSYCHOTIC BEHAVIOUR
     Dosage: 6 MG, BID
     Route: 048
     Dates: start: 20100511, end: 20100529
  6. VALPROIC ACID [Concomitant]
     Indication: MOOD ALTERED
     Dosage: 3 DF, TID
     Route: 048

REACTIONS (4)
  - ORTHOSTATIC HYPOTENSION [None]
  - RASH PAPULAR [None]
  - DIZZINESS [None]
  - PRURITUS [None]
